FAERS Safety Report 8456898-3 (Version None)
Quarter: 2012Q2

REPORT INFORMATION
  Report Type: 
  Country: None (occurrence: None)
  Receive Date: 20120621
  Receipt Date: 20120611
  Transmission Date: 20120825
  Serious: Yes (Life-Threatening, Hospitalization, Disabling, Other)
  Sender: FDA-Public Use
  Company Number: US-FRI-1000031297

PATIENT
  Age: 55 Year
  Sex: Male
  Weight: 70.306 kg

DRUGS (1)
  1. SAVELLA [Suspect]
     Indication: NEURALGIA
     Dosage: 100 MG
     Route: 048
     Dates: start: 20120221, end: 20120309

REACTIONS (15)
  - ACTIVITIES OF DAILY LIVING IMPAIRED [None]
  - RASH [None]
  - PAIN [None]
  - DECREASED APPETITE [None]
  - CONFUSIONAL STATE [None]
  - MOOD ALTERED [None]
  - THINKING ABNORMAL [None]
  - FEAR OF DEATH [None]
  - SUICIDAL IDEATION [None]
  - OFF LABEL USE [None]
  - DEPRESSION [None]
  - SOCIAL FEAR [None]
  - FRUSTRATION [None]
  - SLEEP DISORDER [None]
  - URTICARIA [None]
